FAERS Safety Report 24173822 (Version 1)
Quarter: 2024Q3

REPORT INFORMATION
  Report Type: Spontaneous
  Country: GB (occurrence: GB)
  Receive Date: 20240805
  Receipt Date: 20240805
  Transmission Date: 20241016
  Serious: Yes (Other)
  Sender: MYLAN
  Company Number: GB-MYLANLABS-2024M1069261

PATIENT
  Age: 35 Year
  Sex: Male
  Weight: 69.9 kg

DRUGS (3)
  1. CLOZARIL [Suspect]
     Active Substance: CLOZAPINE
     Indication: Schizophrenia
     Dosage: UNK, QD (100MG MORNING AND 300MG AT EVENING)
     Route: 048
     Dates: start: 20130416
  2. CLOZARIL [Suspect]
     Active Substance: CLOZAPINE
     Dosage: UNK, QD (100MG MORNING AND 250MG AT NIGHT)
     Route: 048
  3. SERTRALINE [Concomitant]
     Active Substance: SERTRALINE HYDROCHLORIDE
     Dosage: 200 MILLIGRAM, QD (ONCE DAILY)
     Route: 048

REACTIONS (4)
  - Thrombocytopenia [Recovered/Resolved]
  - Nausea [Unknown]
  - Vomiting [Unknown]
  - COVID-19 [Unknown]

NARRATIVE: CASE EVENT DATE: 20221214
